FAERS Safety Report 7938710 (Version 4)
Quarter: 2013Q3

REPORT INFORMATION
  Report Type: Spontaneous
  Country: US (occurrence: None)
  Receive Date: 20110419
  Receipt Date: 20130917
  Transmission Date: 20140515
  Serious: Yes (Hospitalization, Other)
  Sender: FDA-Public Use
  Company Number: CIP11000506

PATIENT
  Age: 75 Year
  Sex: Female
  Weight: 75.9 kg

DRUGS (12)
  1. ACTONEL [Suspect]
     Dosage: 35 MG, ORAL
     Route: 048
     Dates: start: 20041029, end: 20050324
  2. FOSAMAX [Suspect]
     Indication: OSTEOPOROSIS
     Dosage: 70 MG WEEKLY, ORAL ; 5 MG DAILY, ORAL; 10 MG, DAILY, ORAL
     Route: 048
     Dates: start: 20010316, end: 20040623
  3. BONIVA [Suspect]
     Indication: OSTEOPOROSIS
     Dosage: 150 MG, ORAL
     Route: 048
     Dates: start: 20051102, end: 20090622
  4. HYZAAR /01284801/ (HYDROCHLOROTHIAZIDE, LOSARTAN POTASSIUM) [Concomitant]
  5. ZOCOR [Concomitant]
  6. AMLODIPINE BESILYATE (AMLODIPINE BESILATE) [Concomitant]
  7. CALTRATE [Concomitant]
  8. ASA (ACETYLSALICYLIC ACID) [Concomitant]
  9. NEXIUM [Concomitant]
  10. ALL OTHER THERAPEUTIC PRODUCTS [Concomitant]
  11. AMBIEN (ZOLPIDEM TARTRATE) [Concomitant]
  12. ROBAXIN (METHOCARBAMOL) [Concomitant]

REACTIONS (13)
  - Stress fracture [None]
  - Femur fracture [None]
  - Pain in extremity [None]
  - Tenderness [None]
  - Gait disturbance [None]
  - Activities of daily living impaired [None]
  - Arthralgia [None]
  - Sensory disturbance [None]
  - Groin pain [None]
  - Musculoskeletal pain [None]
  - Radicular pain [None]
  - Fall [None]
  - Femur fracture [None]
